FAERS Safety Report 17496298 (Version 2)
Quarter: 2020Q1

REPORT INFORMATION
  Report Type: Report from Study
  Country: DE (occurrence: DE)
  Receive Date: 20200303
  Receipt Date: 20200312
  Transmission Date: 20200409
  Serious: Yes (Hospitalization)
  Sender: FDA-Public Use
  Company Number: DE-ROCHE-2553594

PATIENT
  Age: 55 Year
  Sex: Male
  Weight: 78 kg

DRUGS (5)
  1. OXALIPLATIN. [Suspect]
     Active Substance: OXALIPLATIN
     Indication: OESOPHAGEAL ADENOCARCINOMA
     Dosage: DATE OF LAST DOSE OF OXALIPLATIN (158.95 MG) PRIOR TO EVENT ONSET 13/FEB/2020
     Route: 042
  2. FLUOROURACIL. [Suspect]
     Active Substance: FLUOROURACIL
     Indication: OESOPHAGEAL ADENOCARCINOMA
     Dosage: DATE OF LAST DOSE OF FLUOROURACIL (4862 MG) PRIOR TO EVENT ONSET 13/FEB/2020
     Route: 042
  3. LEUCOVORIN [FOLINIC ACID] [Suspect]
     Active Substance: LEUCOVORIN
     Indication: OESOPHAGEAL ADENOCARCINOMA
     Dosage: DATE OF LAST DOSE OF LEUCOVORIN (374 MG) PRIOR TO EVENT ONSET 13/FEB/2020
     Route: 065
  4. ATEZOLIZUMAB. [Suspect]
     Active Substance: ATEZOLIZUMAB
     Indication: OESOPHAGEAL ADENOCARCINOMA
     Dosage: DATE OF LAST DOSE OF ATEZOLIZUMAB (840 MG) PRIOR TO EVENT ONSET 13/FEB/2020
     Route: 042
  5. DOCETAXEL. [Suspect]
     Active Substance: DOCETAXEL
     Indication: OESOPHAGEAL ADENOCARCINOMA
     Dosage: DATE OF LAST DOSE OF DOCETAXEL (93.5 MG) PRIOR TO EVENT ONSET 13/FEB/2020
     Route: 042

REACTIONS (1)
  - Rhabdomyolysis [Recovered/Resolved]

NARRATIVE: CASE EVENT DATE: 20200217
